FAERS Safety Report 4948565-5 (Version None)
Quarter: 2006Q1

REPORT INFORMATION
  Report Type: 
  Country: None (occurrence: None)
  Receive Date: 20060313
  Receipt Date: 20060228
  Transmission Date: 20060701
  Serious: Yes (Other)
  Sender: FDA-Public Use
  Company Number: 2006030514

PATIENT
  Age: 5 Year
  Sex: Female

DRUGS (1)
  1. ZITHROMAX [Suspect]
     Indication: RESPIRATORY TRACT INFECTION
     Dosage: 200 MG (200 MG, 1 IN 1 D), ORAL
     Route: 048
     Dates: start: 20030513

REACTIONS (1)
  - TOOTH DISCOLOURATION [None]
